FAERS Safety Report 19748263 (Version 1)
Quarter: 2021Q3

REPORT INFORMATION
  Report Type: Spontaneous
  Country: US (occurrence: US)
  Receive Date: 20210824
  Receipt Date: 20210824
  Transmission Date: 20211014
  Serious: Yes (Other)
  Sender: FDA-Public Use
  Company Number: None

PATIENT
  Age: 77 Year
  Sex: Male

DRUGS (1)
  1. VITRAKVI [Suspect]
     Active Substance: LAROTRECTINIB
     Indication: GASTRIC CANCER
     Route: 048
     Dates: start: 20210129, end: 20210511

REACTIONS (1)
  - Lymphoma [None]

NARRATIVE: CASE EVENT DATE: 202105
